FAERS Safety Report 9312983 (Version 1)
Quarter: 2013Q2

REPORT INFORMATION
  Report Type: Spontaneous
  Country: US (occurrence: US)
  Receive Date: 20130528
  Receipt Date: 20130528
  Transmission Date: 20140414
  Serious: No
  Sender: FDA-Public Use
  Company Number: US-ABBOTT-13P-163-1058783-00

PATIENT
  Sex: Male
  Weight: 64.47 kg

DRUGS (7)
  1. ANDROGEL 1.62% [Suspect]
     Indication: BLOOD TESTOSTERONE DECREASED
     Dates: start: 2012
  2. ANDROGEL 1.62% [Suspect]
     Dosage: UNKNOWN GRAMS BUT IT WAS A PACKET
     Dates: start: 2010, end: 2012
  3. CALCIUM [Concomitant]
     Indication: SHORT-BOWEL SYNDROME
  4. VITAMIN B-12 [Concomitant]
     Indication: SHORT-BOWEL SYNDROME
  5. VITAMIN D [Concomitant]
     Indication: VITAMIN SUPPLEMENTATION
  6. HYDROCHLOROTHIAZIDE [Concomitant]
     Indication: HYPERTENSION
  7. COUMADIN [Concomitant]
     Indication: MESENTERIC ARTERY EMBOLISM

REACTIONS (4)
  - Drug administered at inappropriate site [Unknown]
  - Fatigue [Not Recovered/Not Resolved]
  - Poor quality sleep [Not Recovered/Not Resolved]
  - Blood creatinine increased [Unknown]
